FAERS Safety Report 25432549 (Version 1)
Quarter: 2025Q2

REPORT INFORMATION
  Report Type: Spontaneous
  Country: PL (occurrence: PL)
  Receive Date: 20250613
  Receipt Date: 20250613
  Transmission Date: 20250717
  Serious: Yes (Other)
  Sender: INDICUS PHARMA LLC
  Company Number: PL-Indicus Pharma-001081

PATIENT
  Age: 87 Year
  Sex: Male

DRUGS (4)
  1. ACETAZOLAMIDE [Suspect]
     Active Substance: ACETAZOLAMIDE
     Indication: Pseudophakia
     Route: 048
  2. PRANOPROFEN [Concomitant]
     Active Substance: PRANOPROFEN
     Indication: Pseudophakia
     Route: 061
  3. ACETAZOLAMIDE [Suspect]
     Active Substance: ACETAZOLAMIDE
     Indication: Cystoid macular oedema
     Route: 048
  4. PRANOPROFEN [Concomitant]
     Active Substance: PRANOPROFEN
     Indication: Cystoid macular oedema
     Route: 061

REACTIONS (2)
  - Choroidal effusion [Recovered/Resolved]
  - Visual acuity reduced [Recovered/Resolved]
